FAERS Safety Report 23815300 (Version 1)
Quarter: 2024Q2

REPORT INFORMATION
  Report Type: Spontaneous
  Country: TW (occurrence: TW)
  Receive Date: 20240503
  Receipt Date: 20240503
  Transmission Date: 20240715
  Serious: Yes (Other)
  Sender: FDA-Public Use
  Company Number: TW-BAXTER-2024BAX017731

PATIENT
  Age: 63 Year
  Sex: Male

DRUGS (4)
  1. CYCLOPHOSPHAMIDE [Suspect]
     Active Substance: CYCLOPHOSPHAMIDE
     Indication: Splenic marginal zone lymphoma stage IV
     Dosage: FOUR COURSES (COP)
     Route: 065
  2. RITUXIMAB [Concomitant]
     Active Substance: RITUXIMAB
     Indication: Splenic marginal zone lymphoma stage IV
     Dosage: SIX COURSES
     Route: 065
  3. VINCRISTINE [Concomitant]
     Active Substance: VINCRISTINE
     Indication: Splenic marginal zone lymphoma stage IV
     Dosage: FOUR COURSES (COP)
     Route: 065
  4. PREDNISONE [Concomitant]
     Active Substance: PREDNISONE
     Indication: Splenic marginal zone lymphoma stage IV
     Dosage: FOUR COURSES (COP)
     Route: 065

REACTIONS (3)
  - Drug intolerance [Unknown]
  - Gastric ulcer [Unknown]
  - Gastric ulcer haemorrhage [Unknown]
